FAERS Safety Report 7627587-X (Version None)
Quarter: 2011Q3

REPORT INFORMATION
  Report Type: 
  Country: None (occurrence: None)
  Receive Date: 20110721
  Receipt Date: 20110715
  Transmission Date: 20111222
  Serious: Yes (Other)
  Sender: FDA-Public Use
  Company Number: US-TEVA-280959USA

PATIENT
  Sex: Male
  Weight: 83.99 kg

DRUGS (1)
  1. PROAIR HFA [Suspect]
     Dosage: 2 PUFFS EVERY Q6H
     Dates: start: 20110401, end: 20110401

REACTIONS (6)
  - WHEEZING [None]
  - COUGH [None]
  - PHARYNGEAL OEDEMA [None]
  - DRUG INEFFECTIVE [None]
  - OROPHARYNGEAL PAIN [None]
  - DYSPNOEA [None]
